FAERS Safety Report 21967307 (Version 2)
Quarter: 2023Q1

REPORT INFORMATION
  Report Type: Other
  Country: US (occurrence: US)
  Receive Date: 20230208
  Receipt Date: 20230307
  Transmission Date: 20230417
  Serious: No
  Sender: FDA-Public Use
  Company Number: US-Covis Pharma GmbH-2023COV00231

PATIENT
  Age: 42 Year
  Sex: Female
  Weight: 77.180 kg

DRUGS (4)
  1. MAKENA [Suspect]
     Active Substance: HYDROXYPROGESTERONE CAPROATE
     Indication: Premature delivery
     Route: 058
     Dates: start: 2023, end: 20230207
  2. LAMICTAL [Concomitant]
     Active Substance: LAMOTRIGINE
     Indication: Seizure
  3. FOLIC ACID [Concomitant]
     Active Substance: FOLIC ACID
     Indication: Pregnancy
     Dosage: 1 MG X 4
     Dates: start: 20221214
  4. VITAMINS [Concomitant]
     Active Substance: VITAMINS
     Indication: Pregnancy

REACTIONS (5)
  - Peripheral swelling [Recovered/Resolved with Sequelae]
  - Injection site pruritus [Recovered/Resolved with Sequelae]
  - Injection site erythema [Unknown]
  - Injection site pain [Recovered/Resolved with Sequelae]
  - Product administration error [Unknown]

NARRATIVE: CASE EVENT DATE: 20230131
